FAERS Safety Report 5932669-4 (Version None)
Quarter: 2008Q4

REPORT INFORMATION
  Report Type: 
  Country: None (occurrence: None)
  Receive Date: 20081009
  Receipt Date: 20071129
  Transmission Date: 20090506
  Serious: Yes (Other)
  Sender: FDA-Public Use
  Company Number: PHEH2007US14877

PATIENT
  Age: 59 Year
  Sex: Female

DRUGS (9)
  1. ZOMETA [Suspect]
     Dosage: MONTHLY, INFUSION; EVERY OTHER MONTH
     Route: 042
     Dates: start: 20040329, end: 20070917
  2. ZOMETA [Suspect]
     Dosage: MONTHLY, INFUSION; EVERY OTHER MONTH
     Route: 042
     Dates: start: 20070901
  3. FEMARA [Suspect]
     Dosage: 2.5 MG, QD-
     Dates: start: 20040301
  4. SYNTHROID [Concomitant]
  5. ZOLOFT [Concomitant]
  6. ZOCOR [Concomitant]
  7. CALCIUM WITH VITAMIN D (CALCIUM PHOSPHATE, CALCIUM SODIUM LACTATE, ERG [Concomitant]
  8. MULTIVITAMINS (ASCORBIC ACID, ERGOCALCIFEROL, FOLIC ACID, NICOTINAMIDE [Concomitant]
  9. ALAVE (NAPROXEN SODIUM) [Concomitant]

REACTIONS (2)
  - BONE DISORDER [None]
  - OSTEONECROSIS [None]
